FAERS Safety Report 17097873 (Version 2)
Quarter: 2020Q1

REPORT INFORMATION
  Report Type: Report from Study
  Country: JP (occurrence: JP)
  Receive Date: 20191202
  Receipt Date: 20200203
  Transmission Date: 20200409
  Serious: Yes (Death, Life-Threatening)
  Sender: FDA-Public Use
  Company Number: JP-KYOWAKIRIN-2019AKK018871

PATIENT

DRUGS (21)
  1. APOMORPHINE [Suspect]
     Active Substance: APOMORPHINE
     Dosage: 1 MG
     Route: 058
     Dates: start: 20170302, end: 20170309
  2. NEUPRO [Concomitant]
     Active Substance: ROTIGOTINE
     Indication: PARKINSON^S DISEASE
     Dosage: 36 MG
  3. STALEVO [Concomitant]
     Active Substance: CARBIDOPA\ENTACAPONE\LEVODOPA
     Indication: PARKINSON^S DISEASE
     Dosage: 350 MG
     Route: 048
     Dates: end: 20170501
  4. REMINYL [Concomitant]
     Active Substance: GALANTAMINE
     Indication: DEMENTIA ALZHEIMER^S TYPE
     Dosage: 8 MG
     Route: 048
     Dates: end: 20170306
  5. APOMORPHINE [Suspect]
     Active Substance: APOMORPHINE
     Dosage: 2 MG
     Route: 058
     Dates: start: 20170327, end: 20170328
  6. STALEVO [Concomitant]
     Active Substance: CARBIDOPA\ENTACAPONE\LEVODOPA
     Dosage: 450 MG
     Route: 048
     Dates: start: 20170502
  7. APOMORPHINE [Suspect]
     Active Substance: APOMORPHINE
     Dosage: 2 MG
     Route: 058
     Dates: start: 20170320, end: 20170320
  8. APOMORPHINE [Suspect]
     Active Substance: APOMORPHINE
     Dosage: 2 MG
     Route: 058
     Dates: start: 20170404, end: 20170404
  9. APOMORPHINE [Suspect]
     Active Substance: APOMORPHINE
     Dosage: 2 MG
     Route: 058
     Dates: start: 20170402, end: 20170402
  10. APOMORPHINE [Suspect]
     Active Substance: APOMORPHINE
     Dosage: 2 MG
     Route: 058
     Dates: start: 20170407, end: 20170407
  11. TRERIEF [Concomitant]
     Active Substance: ZONISAMIDE
     Indication: PARKINSON^S DISEASE
     Dosage: 50 MG
     Route: 048
  12. APOMORPHINE [Suspect]
     Active Substance: APOMORPHINE
     Dosage: 2 MG
     Route: 058
     Dates: start: 20170310, end: 20170315
  13. MEMARY [Concomitant]
     Active Substance: MEMANTINE HYDROCHLORIDE
     Indication: DEMENTIA ALZHEIMER^S TYPE
     Dosage: 5 MG
     Route: 048
     Dates: start: 20170323, end: 20170326
  14. MEMARY [Concomitant]
     Active Substance: MEMANTINE HYDROCHLORIDE
     Dosage: 15 MG
     Route: 048
     Dates: start: 20170406, end: 20170412
  15. APOMORPHINE [Suspect]
     Active Substance: APOMORPHINE
     Indication: PARKINSON^S DISEASE
     Dosage: 2 MG
     Route: 058
     Dates: start: 20170410, end: 20170424
  16. REMINYL [Concomitant]
     Active Substance: GALANTAMINE
     Dosage: 16 MG
     Route: 048
     Dates: start: 20170307
  17. NOURIAST TABLETS [Suspect]
     Active Substance: ISTRADEFYLLINE
     Indication: PARKINSON^S DISEASE
     Dosage: 40 MG
     Route: 048
  18. APOMORPHINE [Suspect]
     Active Substance: APOMORPHINE
     Dosage: 2 MG
     Route: 058
     Dates: start: 20170322, end: 20170322
  19. APOMORPHINE [Suspect]
     Active Substance: APOMORPHINE
     Dosage: 2 MG
     Route: 058
     Dates: start: 20170317, end: 20170317
  20. MEMARY [Concomitant]
     Active Substance: MEMANTINE HYDROCHLORIDE
     Dosage: 10 MG
     Route: 048
     Dates: start: 20170327, end: 20170405
  21. MEMARY [Concomitant]
     Active Substance: MEMANTINE HYDROCHLORIDE
     Dosage: 20 MG
     Route: 048
     Dates: start: 20170413

REACTIONS (4)
  - Dyskinesia [Unknown]
  - Hepatic function abnormal [Fatal]
  - Somnolence [Not Recovered/Not Resolved]
  - Stress cardiomyopathy [Fatal]

NARRATIVE: CASE EVENT DATE: 20170304
